FAERS Safety Report 20871678 (Version 1)
Quarter: 2022Q2

REPORT INFORMATION
  Report Type: Spontaneous
  Country: US (occurrence: None)
  Receive Date: 20220524
  Receipt Date: 20220524
  Transmission Date: 20220721
  Serious: Yes (Life-Threatening)
  Sender: FDA-Public Use
  Company Number: None

PATIENT
  Age: 52 Year
  Sex: Female
  Weight: 50.85 kg

DRUGS (5)
  1. TECFIDERA [Suspect]
     Active Substance: DIMETHYL FUMARATE
     Indication: Progressive multiple sclerosis
     Dosage: FREQUENCY : TWICE A DAY;?
     Route: 048
     Dates: start: 20140101, end: 20220524
  2. TIZANIDINE [Concomitant]
     Active Substance: TIZANIDINE
  3. mirapex 0.1mg [Concomitant]
  4. BACLOFEN [Concomitant]
     Active Substance: BACLOFEN
  5. dalfampridine 10mg bid [Concomitant]

REACTIONS (2)
  - Weight decreased [None]
  - Neoplasm malignant [None]

NARRATIVE: CASE EVENT DATE: 20220504
